FAERS Safety Report 16962318 (Version 4)
Quarter: 2019Q4

REPORT INFORMATION
  Report Type: Spontaneous
  Country: IT (occurrence: IT)
  Receive Date: 20191025
  Receipt Date: 20191231
  Transmission Date: 20200122
  Serious: Yes (Hospitalization)
  Sender: FDA-Public Use
  Company Number: IT-B.I. PHARMACEUTICALS,INC./RIDGEFIELD-2019-12-108951

PATIENT
  Age: 81 Year
  Sex: Male
  Weight: 76 kg

DRUGS (4)
  1. MICARDIS [Suspect]
     Active Substance: TELMISARTAN
     Indication: HYPERTENSION
     Route: 048
  2. VANCOMICINA MYLAN [Suspect]
     Active Substance: VANCOMYCIN
     Indication: IMPLANT SITE ABSCESS
     Dosage: POWDER FOR ORAL SOLUTION
     Route: 042
     Dates: start: 20190919, end: 20190924
  3. FUROSEMIDE. [Suspect]
     Active Substance: FUROSEMIDE
     Indication: OEDEMA
     Route: 048
  4. RIFADIN [Concomitant]
     Active Substance: RIFAMPIN
     Indication: IMPLANT SITE ABSCESS
     Route: 048
     Dates: start: 20190919, end: 20191015

REACTIONS (4)
  - Blood creatine phosphokinase increased [Recovering/Resolving]
  - Drug level increased [Recovering/Resolving]
  - Confusional state [Recovering/Resolving]
  - Blood urea increased [Recovering/Resolving]

NARRATIVE: CASE EVENT DATE: 20190924
